FAERS Safety Report 6956923-2 (Version None)
Quarter: 2010Q3

REPORT INFORMATION
  Report Type: 
  Country: None (occurrence: None)
  Receive Date: 20100826
  Receipt Date: 20100814
  Transmission Date: 20110219
  Serious: Yes (Hospitalization, Other)
  Sender: FDA-Public Use
  Company Number: 2010AP001762

PATIENT
  Age: 65 Year
  Sex: Male

DRUGS (2)
  1. GABAPENTIN [Suspect]
     Indication: HYPOAESTHESIA
     Dosage: 300 MG; TID
  2. ANTIBIOTICS [Concomitant]

REACTIONS (9)
  - BODY TEMPERATURE FLUCTUATION [None]
  - CARPAL TUNNEL SYNDROME [None]
  - CEREBRAL ISCHAEMIA [None]
  - CONDITION AGGRAVATED [None]
  - HYPERSENSITIVITY [None]
  - INTERVERTEBRAL DISC PROTRUSION [None]
  - MYASTHENIA GRAVIS [None]
  - RADICULOPATHY [None]
  - SPINAL COLUMN STENOSIS [None]
